FAERS Safety Report 25958648 (Version 1)
Quarter: 2025Q4

REPORT INFORMATION
  Report Type: Spontaneous
  Country: US (occurrence: US)
  Receive Date: 20251024
  Receipt Date: 20251024
  Transmission Date: 20260117
  Serious: No
  Sender: INCYTE
  Company Number: US-EVENT-004643

PATIENT
  Age: 55 Year

DRUGS (1)
  1. OPZELURA [Suspect]
     Active Substance: RUXOLITINIB PHOSPHATE
     Indication: Rash
     Dosage: 1.5 PERCENT, BID (APPLY A THIN LAYER TO AFFECTED AREA(S) ON HANDS TWICE DAILY)
     Route: 065

REACTIONS (1)
  - Off label use [Unknown]
